FAERS Safety Report 24303562 (Version 1)
Quarter: 2024Q3

REPORT INFORMATION
  Report Type: Spontaneous
  Country: US (occurrence: None)
  Receive Date: 20240909
  Receipt Date: 20240909
  Transmission Date: 20241016
  Serious: Yes (Other)
  Sender: Public
  Company Number: None

PATIENT
  Sex: Female

DRUGS (8)
  1. XDEMVY [Suspect]
     Active Substance: LOTILANER
     Indication: Blepharitis
     Dosage: 1 DROP TWICE A DAY OPHTHALMIC
     Route: 047
     Dates: start: 20240813, end: 20240903
  2. UNSPECIFIED INGREDIENT [Concomitant]
     Active Substance: UNSPECIFIED INGREDIENT
  3. NARATRIPTAN [Concomitant]
     Active Substance: NARATRIPTAN HYDROCHLORIDE
  4. referesh plus [Concomitant]
  5. MK7 [Concomitant]
  6. D [Concomitant]
  7. LYSINE [Concomitant]
     Active Substance: LYSINE
  8. S-Equelle [Concomitant]

REACTIONS (2)
  - Drug hypersensitivity [None]
  - Hordeolum [None]

NARRATIVE: CASE EVENT DATE: 20240908
